FAERS Safety Report 7602097-4 (Version None)
Quarter: 2011Q3

REPORT INFORMATION
  Report Type: 
  Country: None (occurrence: None)
  Receive Date: 20110711
  Receipt Date: 20081211
  Transmission Date: 20111222
  Serious: Yes (Death, Disabling, Other)
  Sender: FDA-Public Use
  Company Number: US-BAYER-200836791NA

PATIENT
  Age: 50 Year
  Sex: Male

DRUGS (13)
  1. METOPROLOL TARTRATE [Concomitant]
  2. PROCRIT [Concomitant]
  3. OMNISCAN [Suspect]
     Indication: NUCLEAR MAGNETIC RESONANCE IMAGING
     Dates: start: 20050802, end: 20050802
  4. OMNISCAN [Suspect]
     Indication: NUCLEAR MAGNETIC RESONANCE IMAGING BRAIN
     Dates: start: 20060905, end: 20060905
  5. RENAGEL [Concomitant]
  6. FOLGARD [CYANOCOBALAMIN,FOLIC ACID,PYRIDOXINE HYDROCHLORIDE,RIBOFLAVIN [Concomitant]
  7. PLAVIX [Concomitant]
  8. NITROGLYCERIN [Concomitant]
  9. MAGNEVIST [Suspect]
     Indication: NUCLEAR MAGNETIC RESONANCE IMAGING
     Dosage: 20 ML, ONCE
     Route: 042
     Dates: start: 20061109, end: 20061109
  10. ARANESP [Concomitant]
  11. PREDNISONE [Concomitant]
  12. ZYLOPRIM [Concomitant]
  13. EPOGEN [Concomitant]

REACTIONS (8)
  - NEPHROGENIC SYSTEMIC FIBROSIS [None]
  - PAIN [None]
  - EMOTIONAL DISTRESS [None]
  - INDURATION [None]
  - MUSCLE CONTRACTURE [None]
  - INJURY [None]
  - ANXIETY [None]
  - MOBILITY DECREASED [None]
